FAERS Safety Report 9255403 (Version 1)
Quarter: 2013Q2

REPORT INFORMATION
  Report Type: Other
  Country: IT (occurrence: IT)
  Receive Date: 20130425
  Receipt Date: 20130425
  Transmission Date: 20140414
  Serious: Yes (Hospitalization)
  Sender: FDA-Public Use
  Company Number: IT-ACTAVIS-2013-07167

PATIENT
  Age: 57 Year
  Sex: Female

DRUGS (3)
  1. OXALIPLATIN [Suspect]
     Indication: RECTAL CANCER
     Dosage: 70 MG/M2, EVERY TRIMESTER
     Route: 042
     Dates: start: 20130403, end: 20130403
  2. IRINOTECAN                         /01280202/ [Concomitant]
     Indication: PRODUCT USED FOR UNKNOWN INDICATION
     Dosage: UNK
     Dates: start: 20111107, end: 20130327
  3. BEVACIZUMAB [Concomitant]
     Indication: PRODUCT USED FOR UNKNOWN INDICATION
     Dosage: UNK
     Dates: start: 20111107, end: 20130327

REACTIONS (3)
  - Application site hyperaesthesia [Recovering/Resolving]
  - Application site pain [Recovering/Resolving]
  - Paraesthesia [Recovering/Resolving]
